FAERS Safety Report 16093522 (Version 4)
Quarter: 2019Q3

REPORT INFORMATION
  Report Type: Report from Study
  Country: JP (occurrence: JP)
  Receive Date: 20190320
  Receipt Date: 20190910
  Transmission Date: 20191004
  Serious: Yes (Hospitalization)
  Sender: FDA-Public Use
  Company Number: JP-GLAXOSMITHKLINE-JP2019JPN022379

PATIENT
  Age: 63 Year
  Sex: Female
  Weight: 47 kg

DRUGS (16)
  1. PREDNISOLONE. [Concomitant]
     Active Substance: PREDNISOLONE
     Dosage: 6.5 MG, 1D
     Dates: start: 20190517
  2. PREDNISOLONE. [Concomitant]
     Active Substance: PREDNISOLONE
     Indication: SYSTEMIC LUPUS ERYTHEMATOSUS
     Dosage: 8.5 MG, 1D
     Dates: start: 20180907, end: 20181206
  3. PREDNISOLONE. [Concomitant]
     Active Substance: PREDNISOLONE
     Dosage: 8 MG, 1D
     Dates: start: 20181207, end: 20190110
  4. PRALIA [Concomitant]
     Active Substance: DENOSUMAB
     Dosage: UNK
  5. JUVELA N [Concomitant]
     Active Substance: TOCOPHERYL NICOTINATE, D-.ALPHA.
     Dosage: UNK
  6. INFLUENZA HA VACCINE [Concomitant]
     Active Substance: INFLUENZA VIRUS VACCINE
     Indication: PROPHYLAXIS
     Dosage: UNK
     Dates: start: 20181207
  7. PREDNISOLONE. [Concomitant]
     Active Substance: PREDNISOLONE
     Dosage: 7.5 MG, 1D
     Dates: start: 20190111, end: 20190221
  8. PREDNISOLONE. [Concomitant]
     Active Substance: PREDNISOLONE
     Dosage: 7 MG, 1D
     Dates: start: 20190222, end: 20190516
  9. PLAQUENIL [Concomitant]
     Active Substance: HYDROXYCHLOROQUINE SULFATE
     Indication: SYSTEMIC LUPUS ERYTHEMATOSUS
     Dosage: 200 MG, 1D
     Dates: start: 20180608
  10. PARIET [Concomitant]
     Active Substance: RABEPRAZOLE SODIUM
     Dosage: UNK
  11. BELIMUMAB SUBCUTANEOUS [Suspect]
     Active Substance: BELIMUMAB
     Indication: SYSTEMIC LUPUS ERYTHEMATOSUS
     Dosage: 200 MG, WE
     Route: 058
     Dates: start: 20181214, end: 20190205
  12. EPADEL S [Concomitant]
     Active Substance: ICOSAPENT ETHYL
     Dosage: UNK
  13. BELIMUMAB SUBCUTANEOUS [Suspect]
     Active Substance: BELIMUMAB
     Dosage: 200 MG, WE
     Route: 058
     Dates: start: 20190219, end: 20190614
  14. AMLODIN OD [Concomitant]
     Active Substance: AMLODIPINE BESYLATE
     Dosage: UNK
  15. ALFAROL [Concomitant]
     Active Substance: ALFACALCIDOL
     Dosage: UNK
  16. METHYCOBAL [Concomitant]
     Active Substance: METHYLCOBALAMIN
     Dosage: UNK

REACTIONS (4)
  - Gastroenteritis [Recovered/Resolved]
  - Vomiting [Recovering/Resolving]
  - Feeding disorder [Recovering/Resolving]
  - Diarrhoea [Recovering/Resolving]

NARRATIVE: CASE EVENT DATE: 201902
